FAERS Safety Report 23586921 (Version 1)
Quarter: 2024Q1

REPORT INFORMATION
  Report Type: Spontaneous
  Country: TH (occurrence: TH)
  Receive Date: 20240301
  Receipt Date: 20240301
  Transmission Date: 20240410
  Serious: Yes (Other)
  Sender: FDA-Public Use
  Company Number: TH-002147023-NVSC2024TH039434

PATIENT
  Age: 61 Year
  Sex: Female

DRUGS (6)
  1. RIBOCICLIB [Suspect]
     Active Substance: RIBOCICLIB
     Indication: Breast cancer
     Dosage: 600 MG, QD (3-WEEKS-ON, 1-WEEK OFF SCHEDULE)
     Route: 065
     Dates: start: 20230117
  2. RIBOCICLIB [Suspect]
     Active Substance: RIBOCICLIB
     Indication: Metastases to bone
     Dosage: 400 MG, QD
     Route: 065
  3. ZOLEDRONIC ACID [Concomitant]
     Active Substance: ZOLEDRONIC ACID
     Indication: Breast cancer
     Dosage: Q 12 WEEKS
     Route: 065
     Dates: start: 20230103
  4. ZOLEDRONIC ACID [Concomitant]
     Active Substance: ZOLEDRONIC ACID
     Indication: Metastases to bone
  5. LETROZOLE [Concomitant]
     Active Substance: LETROZOLE
     Indication: Breast cancer
     Dosage: 2.5 MG, QD
     Route: 065
     Dates: start: 20230117
  6. LETROZOLE [Concomitant]
     Active Substance: LETROZOLE
     Indication: Metastases to bone

REACTIONS (11)
  - Metastases to bone [Unknown]
  - Metastases to spine [Unknown]
  - Neutropenia [Unknown]
  - Weight decreased [Recovered/Resolved]
  - Pain [Recovered/Resolved]
  - Haemoglobin decreased [Unknown]
  - Decreased appetite [Recovered/Resolved]
  - Neutrophil count decreased [Unknown]
  - Platelet count decreased [Unknown]
  - White blood cell count decreased [Unknown]
  - Fatigue [Recovered/Resolved]

NARRATIVE: CASE EVENT DATE: 20230201
